FAERS Safety Report 10086274 (Version 1)
Quarter: 2014Q2

REPORT INFORMATION
  Report Type: Spontaneous
  Country: CA (occurrence: CA)
  Receive Date: 20140418
  Receipt Date: 20140418
  Transmission Date: 20141212
  Serious: Yes (Life-Threatening, Hospitalization, Other)
  Sender: FDA-Public Use
  Company Number: CA-009507513-1404CAN010428

PATIENT
  Age: 46 Year
  Sex: Male

DRUGS (8)
  1. VICTRELIS [Suspect]
     Indication: HEPATITIS C
     Dosage: 800 MG, Q8H
     Route: 048
     Dates: start: 20140313
  2. PEGASYS [Suspect]
     Indication: HEPATITIS C
     Dosage: 180 MICROGRAM, QW
     Dates: start: 20140213
  3. COPEGUS [Suspect]
     Indication: HEPATITIS C
     Dosage: 400 MG, QAM
     Dates: start: 20140213
  4. COPEGUS [Suspect]
     Dosage: 600 MG, QPM
     Dates: start: 20140213
  5. OXYCODONE [Concomitant]
  6. RABEPRAZOLE SODIUM [Concomitant]
     Dosage: UNK
  7. NORTRIPTYLINE [Concomitant]
  8. SILDENAFIL CITRATE [Concomitant]

REACTIONS (3)
  - Cerebrovascular accident [Unknown]
  - Myocardial infarction [Unknown]
  - Sepsis [Unknown]
